FAERS Safety Report 9803839 (Version 1)
Quarter: 2014Q1

REPORT INFORMATION
  Report Type: Spontaneous
  Country: US (occurrence: None)
  Receive Date: 20140103
  Receipt Date: 20140103
  Transmission Date: 20141002
  Serious: Yes (Hospitalization, Disabling, Other)
  Sender: FDA-Public Use
  Company Number: KAD201312-0001757

PATIENT
  Age: 62 Year
  Sex: Male
  Weight: 72 kg

DRUGS (17)
  1. RIBAVIRIN (RIBAVIRIN) [Suspect]
     Indication: HEPATITIS C
     Dosage: 200 MG, TWICE DAILY, ORAL
     Route: 048
     Dates: start: 20120910, end: 20131011
  2. GS-7977 [Suspect]
     Indication: HEPATITIS C
     Dosage: 400 MG, DAILY, ORAL
     Route: 048
     Dates: start: 20130415, end: 20131006
  3. PEGINTERFERON (PEGINTERFERON) [Suspect]
     Indication: HEPATITIS C
     Dosage: 90 MCG, WEEKLY, SUBCUTANEOUS
     Route: 058
     Dates: start: 20120910, end: 20131006
  4. SOFOSBUVIR (SOFOSBUVIR) [Concomitant]
  5. BOCEPREVIR (BOCEPREVIR) [Concomitant]
  6. PEGASYS (PEGINTERFERON ALFA-2A) [Concomitant]
  7. PROGRAF (TACROLIMUS) (1MILLIGRAM) [Concomitant]
  8. LASIX (FUROSEMIDE) (20 MILLIGRAM) [Concomitant]
  9. ADALAT CC (NIFEDDIPINE) (30 MILLIGRAM) [Concomitant]
  10. ATENOLOL (ATENOLOL) [Concomitant]
  11. NIFEDIPINE (NIFEDIPINE) (NIFEDIPINE) [Concomitant]
  12. VITAMIN D (CHOLECALCIFEROL) (1000 MILLIGRAM) [Concomitant]
  13. PROCRIT (EPOETIN ALFA) [Concomitant]
  14. NEUPOGEN (FILGRASTIM) [Concomitant]
  15. FLONASE (FLUTICASONE PROPIONATE) [Concomitant]
  16. PREVACID (LANSOPRAZOLE) (15 MILLIGRAM) [Concomitant]
  17. CENTRUM SILVER (MULTIVITAMIN) [Concomitant]

REACTIONS (12)
  - Dyspnoea [None]
  - Anaemia [None]
  - Pleural effusion [None]
  - Renal failure chronic [None]
  - Osteoarthritis [None]
  - Ascites [None]
  - Chest discomfort [None]
  - Fluid overload [None]
  - Weight increased [None]
  - Dysphagia [None]
  - Blood pressure increased [None]
  - No therapeutic response [None]
